FAERS Safety Report 16540390 (Version 1)
Quarter: 2019Q3

REPORT INFORMATION
  Report Type: Spontaneous
  Country: US (occurrence: US)
  Receive Date: 20190708
  Receipt Date: 20190708
  Transmission Date: 20191004
  Serious: Yes (Other)
  Sender: FDA-Public Use
  Company Number: US-ACS-001438

PATIENT
  Sex: Female

DRUGS (1)
  1. CEFTRIAXONE FOR INJECTION 1 G [Suspect]
     Active Substance: CEFTRIAXONE
     Route: 042

REACTIONS (3)
  - Hypersensitivity [Unknown]
  - Generalised erythema [Unknown]
  - Pharyngeal swelling [Unknown]
